FAERS Safety Report 25871085 (Version 1)
Quarter: 2025Q4

REPORT INFORMATION
  Report Type: Other
  Country: SD (occurrence: SD)
  Receive Date: 20251001
  Receipt Date: 20251001
  Transmission Date: 20260117
  Serious: Yes (Hospitalization, Other)
  Sender: PL DEVELOPMENTS
  Company Number: SD-P+L Devolo-2185713

PATIENT
  Age: 28 Year
  Sex: Male

DRUGS (1)
  1. IBUPROFEN [Suspect]
     Active Substance: IBUPROFEN
     Indication: Arthralgia

REACTIONS (7)
  - Abdominal discomfort [Unknown]
  - Thrombosis [Recovered/Resolved]
  - Acute myocardial infarction [Recovered/Resolved]
  - Behcet^s syndrome [Recovered/Resolved]
  - Cardiac aneurysm [Recovered/Resolved]
  - Self-medication [Unknown]
  - Drug abuse [Unknown]
